FAERS Safety Report 21999401 (Version 1)
Quarter: 2023Q1

REPORT INFORMATION
  Report Type: Other
  Country: US (occurrence: None)
  Receive Date: 20230216
  Receipt Date: 20230216
  Transmission Date: 20230417
  Serious: Yes (Hospitalization)
  Sender: FDA-Public Use
  Company Number: US-ROCHE-3285615

PATIENT
  Age: 60 Year
  Sex: Male
  Weight: 99.880 kg

DRUGS (2)
  1. OCREVUS [Suspect]
     Active Substance: OCRELIZUMAB
     Indication: Primary progressive multiple sclerosis
     Dosage: DATE OF TREATMENT: 21/OCT/2018
     Route: 042
     Dates: start: 2020
  2. AUBAGIO [Concomitant]
     Active Substance: TERIFLUNOMIDE
     Indication: Multiple sclerosis

REACTIONS (1)
  - Haematological infection [Recovered/Resolved]

NARRATIVE: CASE EVENT DATE: 20230201
